FAERS Safety Report 16635536 (Version 1)
Quarter: 2019Q3

REPORT INFORMATION
  Report Type: Report from Study
  Country: IT (occurrence: IT)
  Receive Date: 20190726
  Receipt Date: 20190726
  Transmission Date: 20191004
  Serious: Yes (Hospitalization)
  Sender: FDA-Public Use
  Company Number: IT-TEVA-2019-IT-1083813

PATIENT
  Age: 87 Year
  Sex: Female

DRUGS (4)
  1. CARDIRENE 75 MG [Suspect]
     Active Substance: ASPIRIN DL-LYSINE
     Dosage: 1 DOSAGE FORMS DAILY;
     Route: 048
  2. ALLOPURINOLO TEVA ITALIA 300 MG COMPRESSE [Concomitant]
     Active Substance: ALLOPURINOL
  3. BISOPROLOLO TEVA 2,5 MG COMPRESSE [Suspect]
     Active Substance: BISOPROLOL FUMARATE
     Indication: CARDIAC DISORDER
     Dosage: 1 DOSAGE FORMS DAILY;
     Route: 048
  4. LASIX [Suspect]
     Active Substance: FUROSEMIDE
     Indication: HYPERTENSION
     Dosage: 1 DOSAGE FORMS DAILY;
     Route: 048

REACTIONS (3)
  - Hypernatraemia [Recovered/Resolved]
  - Sopor [Recovered/Resolved]
  - Acute kidney injury [Recovered/Resolved]

NARRATIVE: CASE EVENT DATE: 20180621
